FAERS Safety Report 8966996 (Version 1)
Quarter: 2012Q4

REPORT INFORMATION
  Report Type: 
  Country: US (occurrence: US)
  Receive Date: 20121217
  Receipt Date: 20121217
  Transmission Date: 20130627
  Serious: Yes (Other)
  Sender: FDA-Public Use
  Company Number: US-UCBSA-073078

PATIENT

DRUGS (1)
  1. NEUPRO [Suspect]
     Dosage: 2 MG
     Route: 062

REACTIONS (1)
  - Atrial fibrillation [Unknown]
